FAERS Safety Report 6593232-8 (Version None)
Quarter: 2010Q1

REPORT INFORMATION
  Report Type: 
  Country: None (occurrence: None)
  Receive Date: 20100222
  Receipt Date: 20100222
  Transmission Date: 20100710
  Serious: Yes (Hospitalization, Other)
  Sender: FDA-Public Use
  Company Number: PHHO2008TH08781

PATIENT
  Sex: Female
  Weight: 40 kg

DRUGS (3)
  1. ZOLEDRONIC ACID [Suspect]
     Indication: OSTEOPOROSIS
     Dosage: 5 MG ONCE A YEAR
     Route: 042
     Dates: start: 20061103, end: 20071004
  2. CALCIUM [Concomitant]
  3. VITAMIN D [Concomitant]

REACTIONS (16)
  - DEBRIDEMENT [None]
  - DECREASED APPETITE [None]
  - GINGIVAL INFECTION [None]
  - GINGIVITIS [None]
  - OSTEITIS [None]
  - OSTEOMYELITIS [None]
  - OSTEONECROSIS [None]
  - PAIN IN JAW [None]
  - PARAESTHESIA ORAL [None]
  - PRIMARY SEQUESTRUM [None]
  - SEQUESTRECTOMY [None]
  - SOFT TISSUE INFECTION [None]
  - SWELLING [None]
  - TOOTH EXTRACTION [None]
  - TOOTH LOSS [None]
  - WEIGHT DECREASED [None]
